FAERS Safety Report 10163365 (Version 1)
Quarter: 2014Q2

REPORT INFORMATION
  Report Type: Spontaneous
  Country: AU (occurrence: AU)
  Receive Date: 20140509
  Receipt Date: 20140509
  Transmission Date: 20141212
  Serious: Yes (Other)
  Sender: FDA-Public Use
  Company Number: AU-NAPPMUNDI-GBR-2014-0018194

PATIENT
  Sex: Female

DRUGS (1)
  1. OXYCONTIN TABLETS [Suspect]
     Indication: BACK PAIN
     Dosage: 5 MG, DAILY
     Route: 048

REACTIONS (1)
  - Suicidal ideation [Unknown]
